FAERS Safety Report 12720061 (Version 1)
Quarter: 2016Q3

REPORT INFORMATION
  Report Type: Spontaneous
  Country: US (occurrence: US)
  Receive Date: 20160906
  Receipt Date: 20160906
  Transmission Date: 20161109
  Serious: Yes (Other)
  Sender: FDA-Public Use
  Company Number: None

PATIENT
  Age: 46 Year
  Sex: Male

DRUGS (4)
  1. HUMIRA [Suspect]
     Active Substance: ADALIMUMAB
     Indication: CROHN^S DISEASE
     Dosage: HUMIRA - 40 MG - EVERY 2 WEEKS - SUBCUTANEOUS
     Route: 058
     Dates: start: 20150408
  2. PROTONIX [Concomitant]
     Active Substance: PANTOPRAZOLE SODIUM
  3. IRON [Concomitant]
     Active Substance: IRON
  4. ASACOL [Concomitant]
     Active Substance: MESALAMINE

REACTIONS (8)
  - Pulmonary embolism [None]
  - Large intestinal haemorrhage [None]
  - Sepsis [None]
  - Furuncle [None]
  - Foot amputation [None]
  - Localised infection [None]
  - Increased appetite [None]
  - Weight increased [None]

NARRATIVE: CASE EVENT DATE: 20160320
